FAERS Safety Report 8582166-5 (Version None)
Quarter: 2012Q2

REPORT INFORMATION
  Report Type: 
  Country: None (occurrence: None)
  Receive Date: 20120423
  Receipt Date: 20101019
  Transmission Date: 20120825
  Serious: Yes (Hospitalization)
  Sender: FDA-Public Use
  Company Number: PHHY2010US52308

PATIENT
  Age: 58 Year
  Sex: Male
  Weight: 111.1 kg

DRUGS (24)
  1. EXJADE [Suspect]
     Indication: IRON OVERLOAD
     Dosage: 500 MG, BID, ORAL 1000 MG, BID, ORAL
     Route: 048
     Dates: start: 20090220, end: 20090505
  2. EXJADE [Suspect]
     Indication: IRON OVERLOAD
     Dosage: 500 MG, BID, ORAL 1000 MG, BID, ORAL
     Route: 048
     Dates: start: 20091106, end: 20100816
  3. ACIPHEX [Concomitant]
  4. NITROQUICK (GLYCERYL TRINITRATE) [Concomitant]
  5. VITAMIN D [Concomitant]
  6. CIALIS [Concomitant]
  7. SODIUM BICARBONATE IN PLASTIC CONTAINER [Concomitant]
  8. CALCITROL (CALCIUM CARBONATE, ERGOCALCIFEROL, RETINOL) [Concomitant]
  9. DESFERAL [Concomitant]
  10. ASPIRIN [Concomitant]
  11. COZAAR [Concomitant]
  12. ACETYLSALICYLIC ACID SRT [Concomitant]
  13. ZETIA [Concomitant]
  14. CALCIUM CARBONATE [Concomitant]
  15. CELLCEPT [Concomitant]
  16. FOLIC ACID [Concomitant]
  17. LIPITOR [Concomitant]
  18. NEORAL [Concomitant]
  19. CEPHALEXIN [Concomitant]
  20. LASIX [Concomitant]
  21. PREDNISONE TAB [Concomitant]
  22. CENTRUM SILVER (ASCORBIC ACID, CALCIUM, MINERALS NOS, RETINOL, TOCOPHE [Concomitant]
  23. ALLOPURINOL [Concomitant]
  24. CALCIUM CARBONATE [Concomitant]

REACTIONS (2)
  - BLOOD CREATININE INCREASED [None]
  - DIALYSIS [None]
